FAERS Safety Report 23707501 (Version 1)
Quarter: 2024Q2

REPORT INFORMATION
  Report Type: Other
  Country: US (occurrence: US)
  Receive Date: 20240404
  Receipt Date: 20240404
  Transmission Date: 20240716
  Serious: Yes (Life-Threatening, Hospitalization)
  Sender: FDA-Public Use
  Company Number: US-B.Braun Medical Inc.-2155229

PATIENT
  Age: 74 Year
  Sex: Female

DRUGS (7)
  1. DEXTROSE\LIDOCAINE HYDROCHLORIDE [Suspect]
     Active Substance: DEXTROSE\LIDOCAINE HYDROCHLORIDE
     Indication: Ventricular fibrillation
  2. MAGNESIUM [Suspect]
     Active Substance: MAGNESIUM
  3. CALCITONIN [Concomitant]
     Active Substance: CALCITONIN
  4. LASIX [Concomitant]
     Active Substance: FUROSEMIDE
  5. UNSPECIFIED INGREDIENT [Concomitant]
     Active Substance: UNSPECIFIED INGREDIENT
  6. AMIODARONE [Suspect]
     Active Substance: AMIODARONE
  7. POTASSIUM [Suspect]
     Active Substance: POTASSIUM

REACTIONS (1)
  - Drug ineffective [Unknown]
